FAERS Safety Report 15704390 (Version 7)
Quarter: 2022Q1

REPORT INFORMATION
  Report Type: Spontaneous
  Country: US (occurrence: US)
  Receive Date: 20181210
  Receipt Date: 20220218
  Transmission Date: 20220423
  Serious: Yes (Other)
  Sender: FDA-Public Use
  Company Number: PHEH2018US051748

PATIENT
  Sex: Male

DRUGS (1)
  1. TASIGNA [Suspect]
     Active Substance: NILOTINIB
     Indication: Chronic myeloid leukaemia
     Dosage: 300 MG, BID
     Route: 048
     Dates: start: 200804, end: 201710

REACTIONS (30)
  - Cardiovascular disorder [Unknown]
  - Azotaemia [Unknown]
  - Peripheral artery occlusion [Unknown]
  - Peripheral arterial occlusive disease [Unknown]
  - Cerebrovascular accident [Unknown]
  - Hypertension [Unknown]
  - Scar [Unknown]
  - Atelectasis [Unknown]
  - Rhinitis allergic [Unknown]
  - Obesity [Unknown]
  - Asthma [Unknown]
  - Lumbar radiculopathy [Unknown]
  - Wrist fracture [Unknown]
  - Dry skin [Unknown]
  - Injury [Unknown]
  - Peripheral vascular disorder [Unknown]
  - Intermittent claudication [Unknown]
  - Pain in extremity [Unknown]
  - Constipation [Unknown]
  - Cough [Unknown]
  - Pleural effusion [Unknown]
  - Abdominal pain upper [Unknown]
  - Decreased appetite [Unknown]
  - Arthralgia [Unknown]
  - Myalgia [Unknown]
  - Weight decreased [Unknown]
  - Pain [Unknown]
  - Arteriosclerosis [Unknown]
  - Emotional distress [Unknown]
  - Anxiety [Unknown]

NARRATIVE: CASE EVENT DATE: 20090101
